FAERS Safety Report 18748246 (Version 2)
Quarter: 2021Q1

REPORT INFORMATION
  Report Type: Spontaneous
  Country: US (occurrence: US)
  Receive Date: 20210115
  Receipt Date: 20210309
  Transmission Date: 20210419
  Serious: No
  Sender: FDA-Public Use
  Company Number: US-ASTRAZENECA-2020SF74760

PATIENT
  Age: 24918 Day
  Sex: Female
  Weight: 113.4 kg

DRUGS (9)
  1. ZOLOFT [Concomitant]
     Active Substance: SERTRALINE HYDROCHLORIDE
  2. SPIRIVA [Concomitant]
     Active Substance: TIOTROPIUM BROMIDE MONOHYDRATE
  3. ALBUTEROL. [Concomitant]
     Active Substance: ALBUTEROL
     Dosage: AS REQUIRED
  4. LEVOTHYROXINE. [Concomitant]
     Active Substance: LEVOTHYROXINE
     Indication: THYROID DISORDER
  5. SYMBICORT [Suspect]
     Active Substance: BUDESONIDE\FORMOTEROL FUMARATE DIHYDRATE
     Indication: ASTHMA
     Dosage: TWO TIMES A DAY
     Route: 055
  6. FASENRA [Suspect]
     Active Substance: BENRALIZUMAB
     Indication: ASTHMA
     Route: 058
  7. HIGH CHOLESTEROL PILL [Concomitant]
     Indication: BLOOD CHOLESTEROL INCREASED
  8. SINGULAIR [Concomitant]
     Active Substance: MONTELUKAST SODIUM
  9. XANAX [Concomitant]
     Active Substance: ALPRAZOLAM

REACTIONS (3)
  - Arthralgia [Not Recovered/Not Resolved]
  - Drug ineffective [Unknown]
  - Blepharitis [Not Recovered/Not Resolved]

NARRATIVE: CASE EVENT DATE: 20201201
